FAERS Safety Report 8069653-3 (Version None)
Quarter: 2012Q1

REPORT INFORMATION
  Report Type: 
  Country: None (occurrence: None)
  Receive Date: 20120119
  Receipt Date: 20120110
  Transmission Date: 20120608
  Serious: Yes (Other)
  Sender: FDA-Public Use
  Company Number: MPS1-1000623

PATIENT
  Age: 26 Year
  Sex: Male
  Weight: 45 kg

DRUGS (1)
  1. ALDURAZYME [Suspect]
     Indication: MUCOPOLYSACCHARIDOSIS I
     Dosage: 26.1 MG, QW, INTRAVENOUS
     Route: 042
     Dates: end: 20030101

REACTIONS (1)
  - CORNEAL DISORDER [None]
